FAERS Safety Report 8841884 (Version 1)
Quarter: 2012Q4

REPORT INFORMATION
  Report Type: 
  Country: US (occurrence: US)
  Receive Date: 20121016
  Receipt Date: 20121016
  Transmission Date: 20130627
  Serious: Yes (Other)
  Sender: FDA-Public Use
  Company Number: US-JNJFOC-20121005374

PATIENT

DRUGS (2)
  1. KETOCONAZOLE [Suspect]
     Indication: PRODUCT USED FOR UNKNOWN INDICATION
     Dosage: for 15 days during period 2 for study 2
     Route: 065
  2. UNSPECIFIED INGREDIENT [Interacting]
     Indication: PRODUCT USED FOR UNKNOWN INDICATION
     Dosage: During period 1, for 10 days. During period 2, days 5 to 14
     Route: 065

REACTIONS (2)
  - Anaphylactic reaction [Unknown]
  - Drug interaction [Unknown]
